FAERS Safety Report 10017418 (Version 1)
Quarter: 2014Q1

REPORT INFORMATION
  Report Type: Spontaneous
  Country: US (occurrence: US)
  Receive Date: 20140318
  Receipt Date: 20140318
  Transmission Date: 20141002
  Serious: No
  Sender: FDA-Public Use
  Company Number: US-PFIZER INC-2014073378

PATIENT
  Age: 46 Year
  Sex: Female
  Weight: 77.1 kg

DRUGS (2)
  1. PREMARIN [Suspect]
     Dosage: 0.5 MG, 1X/DAY
  2. LIOTHYRONINE [Concomitant]
     Indication: THYROID DISORDER
     Dosage: 0.25 MG, 1X/DAY

REACTIONS (5)
  - Nervousness [Unknown]
  - Anxiety [Unknown]
  - Insomnia [Unknown]
  - Hot flush [Unknown]
  - Palpitations [Unknown]
